FAERS Safety Report 21185325 (Version 1)
Quarter: 2022Q3

REPORT INFORMATION
  Report Type: Spontaneous
  Country: BR (occurrence: BR)
  Receive Date: 20220808
  Receipt Date: 20220808
  Transmission Date: 20221027
  Serious: Yes (Life-Threatening, Hospitalization, Other)
  Sender: FDA-Public Use
  Company Number: BR-PFIZER INC-2018388638

PATIENT
  Age: 41 Year
  Sex: Male

DRUGS (2)
  1. LORAZEPAM [Suspect]
     Active Substance: LORAZEPAM
     Indication: Anxiety
     Dosage: 1 MG, UNK
     Dates: start: 1995
  2. LORAZEPAM [Suspect]
     Active Substance: LORAZEPAM
     Dosage: 2 TABLETS, DAILY

REACTIONS (3)
  - Cardiac fibrillation [Unknown]
  - Tachycardia [Unknown]
  - Drug dependence [Not Recovered/Not Resolved]

NARRATIVE: CASE EVENT DATE: 19950101
